FAERS Safety Report 17991085 (Version 2)
Quarter: 2020Q3

REPORT INFORMATION
  Report Type: Report from Study
  Country: US (occurrence: US)
  Receive Date: 20200707
  Receipt Date: 20200721
  Transmission Date: 20201103
  Serious: Yes (Hospitalization)
  Sender: FDA-Public Use
  Company Number: US-BAUSCH-BL-2020-018928

PATIENT
  Age: 66 Year
  Sex: Male

DRUGS (2)
  1. XIFAXAN [Suspect]
     Active Substance: RIFAXIMIN
     Indication: HEPATIC CIRRHOSIS
     Route: 048
     Dates: start: 20170315, end: 202003
  2. SEROQUEL [Concomitant]
     Active Substance: QUETIAPINE FUMARATE
     Indication: PRODUCT USED FOR UNKNOWN INDICATION
     Route: 048
     Dates: start: 202005

REACTIONS (8)
  - Fall [Not Recovered/Not Resolved]
  - Blood potassium decreased [Unknown]
  - Ammonia increased [Not Recovered/Not Resolved]
  - Hernia [Not Recovered/Not Resolved]
  - Confusional state [Not Recovered/Not Resolved]
  - Insurance issue [Unknown]
  - Ill-defined disorder [Not Recovered/Not Resolved]
  - Therapy interrupted [Unknown]

NARRATIVE: CASE EVENT DATE: 201908
